FAERS Safety Report 20873160 (Version 1)
Quarter: 2022Q2

REPORT INFORMATION
  Report Type: Spontaneous
  Country: US (occurrence: US)
  Receive Date: 20220525
  Receipt Date: 20220525
  Transmission Date: 20220720
  Serious: No
  Sender: FDA-Public Use
  Company Number: US-BRISTOL-MYERS SQUIBB COMPANY-2022-030230

PATIENT
  Age: 74 Year
  Sex: Female
  Weight: 67.58 kg

DRUGS (1)
  1. POMALYST [Suspect]
     Active Substance: POMALIDOMIDE
     Indication: Plasma cell myeloma
     Dosage: DOSE: 2 MG  FREQUENCY: 14 DAYS ON AND 14 DAYS OFF
     Route: 048
     Dates: start: 20211006

REACTIONS (3)
  - Nervousness [Unknown]
  - Obsessive-compulsive disorder [Unknown]
  - Fatigue [Unknown]
